FAERS Safety Report 6742581-9 (Version None)
Quarter: 2010Q2

REPORT INFORMATION
  Report Type: 
  Country: None (occurrence: None)
  Receive Date: 20100524
  Receipt Date: 20100421
  Transmission Date: 20101027
  Serious: No
  Sender: FDA-Public Use
  Company Number: ACO_00743_2010

PATIENT
  Age: 57 Year
  Sex: Male
  Weight: 66.6788 kg

DRUGS (6)
  1. AMPYRA [Suspect]
     Indication: GAIT DISTURBANCE
     Dosage: 10 MG BID, 5 DOSES TOTAL, ORAL
     Route: 048
     Dates: start: 20100417, end: 20100420
  2. AMPYRA [Suspect]
     Indication: MULTIPLE SCLEROSIS
     Dosage: 10 MG BID, 5 DOSES TOTAL, ORAL
     Route: 048
     Dates: start: 20100417, end: 20100420
  3. NEURONTIN [Concomitant]
  4. DIAZEPAM [Concomitant]
  5. ACTIGALL [Concomitant]
  6. COPAXONE [Concomitant]

REACTIONS (6)
  - CONDITION AGGRAVATED [None]
  - DRUG INEFFECTIVE [None]
  - HYPOAESTHESIA [None]
  - PAIN [None]
  - PRODUCT QUALITY ISSUE [None]
  - SENSATION OF HEAVINESS [None]
